FAERS Safety Report 6326926-X (Version None)
Quarter: 2009Q3

REPORT INFORMATION
  Report Type: 
  Country: None (occurrence: None)
  Receive Date: 20090821
  Receipt Date: 20090806
  Transmission Date: 20100115
  Serious: Yes (Hospitalization)
  Sender: FDA-Public Use
  Company Number: 1000007720

PATIENT
  Age: 87 Year
  Sex: Female

DRUGS (4)
  1. CITALOPRAM HYDROBROMIDE [Suspect]
     Dosage: 10 MG (10 MG, 1 IN 1 D)
  2. ATENOLOL [Concomitant]
  3. LANSOPRAZOLE [Concomitant]
  4. RANITIDINE [Concomitant]

REACTIONS (5)
  - ABDOMINAL PAIN [None]
  - AMNESIA [None]
  - DELUSION OF REPLACEMENT [None]
  - DEMENTIA WITH LEWY BODIES [None]
  - REFUSAL OF TREATMENT BY PATIENT [None]
